FAERS Safety Report 21234614 (Version 1)
Quarter: 2022Q3

REPORT INFORMATION
  Report Type: Spontaneous
  Country: CA (occurrence: CA)
  Receive Date: 20220820
  Receipt Date: 20220820
  Transmission Date: 20221027
  Serious: Yes (Other)
  Sender: FDA-Public Use
  Company Number: CA-AUROBINDO-AUR-APL-2022-033352

PATIENT
  Weight: 3 kg

DRUGS (10)
  1. AMOXICILLIN\CLAVULANIC ACID [Suspect]
     Active Substance: AMOXICILLIN\CLAVULANIC ACID
     Indication: Pneumonia bacterial
     Dosage: UNK
     Route: 064
  2. AZITHROMYCIN [Suspect]
     Active Substance: AZITHROMYCIN
     Indication: Pneumonia bacterial
     Dosage: 500 MILLIGRAM, TWO TIMES A DAY
     Route: 064
  3. FUROSEMIDE [Suspect]
     Active Substance: FUROSEMIDE
     Indication: Non-cardiogenic pulmonary oedema
     Dosage: UNK
     Route: 064
  4. BETAMETHASONE [Suspect]
     Active Substance: BETAMETHASONE
     Indication: Foetal heart rate abnormal
     Dosage: 12 MILLIGRAM
     Route: 064
  5. CEFTRIAXONE SODIUM [Suspect]
     Active Substance: CEFTRIAXONE SODIUM
     Indication: Pneumonia bacterial
     Dosage: UNK
     Route: 064
  6. DALTEPARIN SODIUM [Suspect]
     Active Substance: DALTEPARIN SODIUM
     Indication: Thrombosis prophylaxis
     Dosage: UNK
     Route: 064
  7. FENTANYL [Suspect]
     Active Substance: FENTANYL
     Indication: Sedation
     Dosage: UNK
     Route: 064
  8. HYDROXYCHLOROQUINE [Suspect]
     Active Substance: HYDROXYCHLOROQUINE
     Indication: Pneumonia bacterial
     Dosage: 200 MILLIGRAM, 3 TIMES A DAY
     Route: 064
  9. MIDAZOLAM [Suspect]
     Active Substance: MIDAZOLAM
     Indication: Sedation
     Dosage: UNK
     Route: 064
  10. PROPOFOL [Suspect]
     Active Substance: PROPOFOL
     Indication: Sedation
     Dosage: UNK
     Route: 064

REACTIONS (2)
  - Foetal heart rate deceleration abnormality [Recovered/Resolved]
  - Foetal exposure during pregnancy [Recovered/Resolved]
